FAERS Safety Report 24919470 (Version 1)
Quarter: 2025Q1

REPORT INFORMATION
  Report Type: Spontaneous
  Country: ES (occurrence: ES)
  Receive Date: 20250204
  Receipt Date: 20250204
  Transmission Date: 20250409
  Serious: No
  Sender: EXELIXIS
  Company Number: ES-IPSEN Group, Research and Development-2023-27018

PATIENT
  Sex: Female

DRUGS (1)
  1. CABOMETYX [Suspect]
     Active Substance: CABOZANTINIB S-MALATE
     Indication: Product used for unknown indication
     Route: 065

REACTIONS (4)
  - Drug hypersensitivity [Unknown]
  - Dermatitis allergic [Unknown]
  - Drug intolerance [Unknown]
  - Product dose omission issue [Unknown]
